FAERS Safety Report 5925914-2 (Version None)
Quarter: 2008Q4

REPORT INFORMATION
  Report Type: 
  Country: None (occurrence: None)
  Receive Date: 20081021
  Receipt Date: 20081014
  Transmission Date: 20090506
  Serious: Yes (Other)
  Sender: FDA-Public Use
  Company Number: GB-PFIZER INC-2008087013

PATIENT
  Age: 44 Year
  Sex: Male

DRUGS (1)
  1. AMLODIPINE [Suspect]
     Route: 048

REACTIONS (1)
  - HIV TEST POSITIVE [None]
